FAERS Safety Report 22794038 (Version 3)
Quarter: 2023Q4

REPORT INFORMATION
  Report Type: Spontaneous
  Country: US (occurrence: US)
  Receive Date: 20230807
  Receipt Date: 20231003
  Transmission Date: 20240109
  Serious: Yes (Other)
  Sender: FDA-Public Use
  Company Number: US-PFIZER INC-PV202300135947

PATIENT
  Age: 57 Year
  Sex: Female

DRUGS (1)
  1. IBRANCE [Suspect]
     Active Substance: PALBOCICLIB
     Indication: Neoplasm malignant
     Dosage: 125 MG

REACTIONS (15)
  - Spinal compression fracture [Unknown]
  - Condition aggravated [Unknown]
  - Tremor [Unknown]
  - Muscle twitching [Unknown]
  - Abnormal dreams [Unknown]
  - Nausea [Unknown]
  - Dyspnoea [Unknown]
  - Dry eye [Unknown]
  - Arthralgia [Unknown]
  - Bone pain [Unknown]
  - Back pain [Unknown]
  - Stomatitis [Unknown]
  - Headache [Unknown]
  - Insomnia [Unknown]
  - Rash [Not Recovered/Not Resolved]
